FAERS Safety Report 4728924-6 (Version None)
Quarter: 2005Q3

REPORT INFORMATION
  Report Type: 
  Country: None (occurrence: None)
  Receive Date: 20050729
  Receipt Date: 20050516
  Transmission Date: 20060218
  Serious: No
  Sender: FDA-Public Use
  Company Number: US-GLAXOSMITHKLINE-A0559195A

PATIENT
  Age: 58 Year
  Sex: Female

DRUGS (4)
  1. IMITREX [Suspect]
     Indication: MIGRAINE
     Dosage: 100MG UNKNOWN
     Route: 048
     Dates: start: 20040801
  2. EFFEXOR [Concomitant]
  3. VICODIN [Concomitant]
  4. NEXIUM [Concomitant]

REACTIONS (8)
  - CHEST DISCOMFORT [None]
  - CHEST PAIN [None]
  - EAR PAIN [None]
  - INFLAMMATION [None]
  - PHARYNGOLARYNGEAL PAIN [None]
  - RHINALGIA [None]
  - RIB FRACTURE [None]
  - WEIGHT INCREASED [None]
